FAERS Safety Report 6124229-X (Version None)
Quarter: 2009Q1

REPORT INFORMATION
  Report Type: 
  Country: None (occurrence: None)
  Receive Date: 20090319
  Receipt Date: 20090309
  Transmission Date: 20090719
  Serious: Yes (Death)
  Sender: FDA-Public Use
  Company Number: US-WATSON-2009-01594

PATIENT
  Age: 55 Year
  Sex: Male

DRUGS (2)
  1. DOBUTAMINE HCL [Suspect]
     Indication: STRESS ECHOCARDIOGRAM
     Dosage: 50 MCG/KG/MIN
     Route: 042
     Dates: start: 20090101
  2. ATROPINE [Suspect]
     Indication: STRESS ECHOCARDIOGRAM
     Dosage: 0.5 MG, UNK
     Dates: start: 20090101

REACTIONS (1)
  - ANEURYSM RUPTURED [None]
